FAERS Safety Report 4414089-7 (Version None)
Quarter: 2004Q3

REPORT INFORMATION
  Report Type: 
  Country: None (occurrence: None)
  Receive Date: 20040728
  Receipt Date: 20040714
  Transmission Date: 20050211
  Serious: No
  Sender: FDA-Public Use
  Company Number: 02100-JPN-04-0100

PATIENT
  Age: 50 Year
  Sex: Male

DRUGS (5)
  1. CILOSTAZOL [Suspect]
     Indication: ARTERIOSCLEROSIS
     Dosage: 200 MG, ORAL
     Route: 048
     Dates: start: 20040129, end: 20040301
  2. CILOSTAZOL [Suspect]
     Indication: CEREBRAL INFARCTION
     Dosage: 200 MG, ORAL
     Route: 048
     Dates: start: 20040129, end: 20040301
  3. BROMPHEXINE HYDROCHLORIDE [Concomitant]
  4. CARBOCISTEINE [Concomitant]
  5. VALSARTAN [Concomitant]

REACTIONS (3)
  - HEART RATE INCREASED [None]
  - SUPRAVENTRICULAR EXTRASYSTOLES [None]
  - VENTRICULAR EXTRASYSTOLES [None]
